FAERS Safety Report 24659936 (Version 1)
Quarter: 2024Q4

REPORT INFORMATION
  Report Type: Spontaneous
  Country: GB (occurrence: GB)
  Receive Date: 20241125
  Receipt Date: 20241125
  Transmission Date: 20250115
  Serious: Yes (Other)
  Sender: MYLAN
  Company Number: GB-MHRA-TPP18165723C5282735YC1732021236243

PATIENT
  Age: 31 Year
  Sex: Male
  Weight: 76 kg

DRUGS (6)
  1. SILDENAFIL [Suspect]
     Active Substance: SILDENAFIL
     Indication: Ill-defined disorder
     Dosage: 25 MILLIGRAM
     Route: 065
     Dates: start: 20241022
  2. TADALAFIL [Concomitant]
     Active Substance: TADALAFIL
     Indication: Ill-defined disorder
     Dosage: 1 DOSAGE FORM (TAKE ONE TABLET, 30 MINUTES BEFORE DESIRED EFFECT.)
     Route: 065
  3. LANTUS [Concomitant]
     Active Substance: INSULIN GLARGINE
     Indication: Ill-defined disorder
     Dosage: 10 INTERNATIONAL UNIT, QD (AS ADVISED BY DIABETES TEAM - 10 UNITS ONCE DAILY)
     Route: 065
     Dates: start: 20240911
  4. Sukkarto sr [Concomitant]
     Indication: Ill-defined disorder
     Dosage: 1 DOSAGE FORM, BID (TAKE ONE TABLET TWICE DAILY)
     Route: 065
     Dates: start: 20240911, end: 20241112
  5. INSULIN ASPART [Concomitant]
     Active Substance: INSULIN ASPART
     Indication: Ill-defined disorder
     Dosage: 4 INTERNATIONAL UNIT, TID (4 UNITS TDS)
     Route: 065
     Dates: start: 20240911
  6. DEXTROSE [Concomitant]
     Active Substance: DEXTROSE MONOHYDRATE
     Indication: Ill-defined disorder
     Dosage: UNK (USE AS DIRECTED)
     Route: 065
     Dates: start: 20241112

REACTIONS (1)
  - Hypoglycaemia [Recovered/Resolved]
